FAERS Safety Report 12726670 (Version 1)
Quarter: 2016Q3

REPORT INFORMATION
  Report Type: Spontaneous
  Country: US (occurrence: US)
  Receive Date: 20160908
  Receipt Date: 20160908
  Transmission Date: 20161109
  Serious: Yes (Hospitalization)
  Sender: FDA-Public Use
  Company Number: US-RELYPSA-RLY2016002255

PATIENT
  Sex: Male

DRUGS (17)
  1. VELTASSA [Suspect]
     Active Substance: PATIROMER
     Indication: HYPERKALAEMIA
     Dosage: 8.4 G, QD
     Route: 048
  2. COLACE [Concomitant]
     Active Substance: DOCUSATE SODIUM
  3. VITAMINS NOS [Concomitant]
     Active Substance: VITAMINS
  4. ASPIRIN. [Concomitant]
     Active Substance: ASPIRIN
  5. ATORVASTATIN CALCIUM. [Concomitant]
     Active Substance: ATORVASTATIN CALCIUM
  6. CARVEDILOL. [Concomitant]
     Active Substance: CARVEDILOL
  7. OMEPRAZOLE. [Concomitant]
     Active Substance: OMEPRAZOLE
  8. PLAVIX [Concomitant]
     Active Substance: CLOPIDOGREL BISULFATE
  9. FUROSEMIDE. [Concomitant]
     Active Substance: FUROSEMIDE
  10. GLYBURIDE (MICRONIZED) [Concomitant]
  11. NITROGLYCERIN. [Concomitant]
     Active Substance: NITROGLYCERIN
  12. TRAMADOL HCL [Concomitant]
     Active Substance: TRAMADOL HYDROCHLORIDE
  13. VELPHORO [Concomitant]
     Active Substance: FERRIC OXYHYDROXIDE
  14. VITAMIN D3 [Concomitant]
     Active Substance: CHOLECALCIFEROL
  15. AMLODIPINE BESYLATE. [Concomitant]
     Active Substance: AMLODIPINE BESYLATE
  16. HUMALOG [Concomitant]
     Active Substance: INSULIN LISPRO
  17. LOSARTAN POTASSIUM. [Concomitant]
     Active Substance: LOSARTAN POTASSIUM

REACTIONS (1)
  - Hospitalisation [Unknown]
